FAERS Safety Report 9636974 (Version 6)
Quarter: 2014Q1

REPORT INFORMATION
  Report Type: Report from Study
  Country: AR (occurrence: AR)
  Receive Date: 20131022
  Receipt Date: 20140128
  Transmission Date: 20141002
  Serious: Yes (Hospitalization)
  Sender: FDA-Public Use
  Company Number: AR-AMGEN-ARGCT2013073858

PATIENT
  Age: 52 Year
  Sex: Female

DRUGS (15)
  1. ETANERCEPT [Suspect]
     Indication: RHEUMATOID ARTHRITIS
     Dosage: 50 MG, QWK
     Route: 058
     Dates: start: 20120823
  2. METHOTREXATE [Concomitant]
     Indication: RHEUMATOID ARTHRITIS
     Dosage: 15 MG, WEEKLY
     Route: 048
     Dates: start: 200905, end: 20130923
  3. METHOTREXATE [Concomitant]
     Dosage: 15 MG, WEEKLY
     Route: 048
     Dates: start: 20131026
  4. ACLA DUO [Concomitant]
     Indication: ACUTE SINUSITIS
     Dosage: 2 G, DAILY
     Route: 048
     Dates: start: 20121007, end: 20121016
  5. CLONAZEPAM [Concomitant]
     Indication: ANXIETY
     Dosage: 0.25 MG, DAILY
     Route: 048
     Dates: start: 20121003
  6. CLONAZEPAM [Concomitant]
     Indication: DEPRESSION
  7. SERTRALINE                         /01011402/ [Concomitant]
     Indication: ANXIETY
     Dosage: 50 MG, DAILY
     Route: 048
     Dates: start: 20121003
  8. SERTRALINE                         /01011402/ [Concomitant]
     Indication: DEPRESSION
  9. FOLIC ACID [Concomitant]
     Dosage: 5 MG, ONCE WEEKLY
     Route: 048
     Dates: start: 200406
  10. DICLOFENAC [Concomitant]
     Indication: RHEUMATOID ARTHRITIS
     Dosage: 150 MG, DAILY
     Route: 048
     Dates: start: 200905, end: 20130923
  11. PARACETAMOL [Concomitant]
     Indication: RHEUMATOID ARTHRITIS
     Dosage: 1000 MG, DAILY
     Route: 048
     Dates: start: 200703, end: 20130923
  12. PARACETAMOL [Concomitant]
     Dosage: 2000 MG, 1X/DAY
     Route: 048
     Dates: start: 20131024
  13. HYDROXYCHLOROQUINE                 /00072603/ [Concomitant]
     Indication: RHEUMATOID ARTHRITIS
     Dosage: 200 MG, DAILY
     Route: 048
     Dates: start: 201003, end: 20130923
  14. RANITIDINE [Concomitant]
     Dosage: 300 MG, DAILY
     Route: 048
     Dates: start: 200704, end: 20130923
  15. TRIMEBUTINE [Concomitant]
     Dosage: 300 MG, 1X/DAY
     Route: 048
     Dates: start: 20131023

REACTIONS (1)
  - Diverticulum intestinal [Recovered/Resolved]
